FAERS Safety Report 25788004 (Version 2)
Quarter: 2025Q4

REPORT INFORMATION
  Report Type: Spontaneous
  Country: GB (occurrence: GB)
  Receive Date: 20250910
  Receipt Date: 20251202
  Transmission Date: 20260118
  Serious: Yes (Hospitalization, Other)
  Sender: DR REDDYS
  Company Number: None

PATIENT
  Age: 76 Year
  Sex: Female

DRUGS (8)
  1. CAPECITABINE [Suspect]
     Active Substance: CAPECITABINE
     Indication: Breast cancer metastatic
     Route: 048
     Dates: start: 202402
  2. CAPECITABINE [Suspect]
     Active Substance: CAPECITABINE
     Indication: Breast cancer metastatic
  3. TRASTUZUMAB [Suspect]
     Active Substance: TRASTUZUMAB
     Indication: Breast cancer metastatic
     Dates: start: 202402
  4. TRASTUZUMAB [Suspect]
     Active Substance: TRASTUZUMAB
     Indication: Breast cancer metastatic
     Dates: start: 202409
  5. TUCATINIB [Suspect]
     Active Substance: TUCATINIB
     Indication: Breast cancer metastatic
     Dates: start: 202402
  6. TUCATINIB [Suspect]
     Active Substance: TUCATINIB
     Indication: Breast cancer metastatic
     Dates: start: 202409
  7. INFLIXIMAB [Suspect]
     Active Substance: INFLIXIMAB
     Indication: Pneumonitis
     Dosage: ON DAY FIVE SINGLE DOSE; FURTHER DOSE OF INFLIXIMAB 5 MG/KG WAS GIVEN 14 DAYS AFTER THE INITIAL DOSE
  8. TRASTUZUMAB DERUXTECAN [Concomitant]
     Active Substance: TRASTUZUMAB DERUXTECAN
     Indication: Product used for unknown indication
     Dates: start: 202212, end: 202402

REACTIONS (3)
  - Pneumonitis [Recovering/Resolving]
  - Interstitial lung abnormality [Unknown]
  - Off label use [Unknown]

NARRATIVE: CASE EVENT DATE: 20240401
